FAERS Safety Report 11230727 (Version 1)
Quarter: 2015Q2

REPORT INFORMATION
  Report Type: Spontaneous
  Country: US (occurrence: None)
  Receive Date: 20150629
  Receipt Date: 20150629
  Transmission Date: 20150821
  Serious: Yes (Disabling, Other)
  Sender: FDA-Public Use
  Company Number: None

PATIENT
  Age: 65 Year
  Sex: Female
  Weight: 57.15 kg

DRUGS (9)
  1. CIPRO [Suspect]
     Active Substance: CIPROFLOXACIN HYDROCHLORIDE
     Indication: URINARY TRACT INFECTION
  2. ARNIKA [Concomitant]
  3. LISINOPRIL. [Concomitant]
     Active Substance: LISINOPRIL
  4. RAW PROBIOTICS [Concomitant]
  5. PROTANDIM [Concomitant]
     Active Substance: DIETARY SUPPLEMENT
  6. ESTROVEN [Concomitant]
     Active Substance: DIETARY SUPPLEMENT
  7. ESTRACE [Concomitant]
     Active Substance: ESTRADIOL
  8. ALEVE [Concomitant]
     Active Substance: NAPROXEN SODIUM
  9. SIMVASTATIN. [Concomitant]
     Active Substance: SIMVASTATIN

REACTIONS (20)
  - Arthralgia [None]
  - Blood pressure increased [None]
  - Tongue disorder [None]
  - Ventricular extrasystoles [None]
  - Neuroma [None]
  - Tendon pain [None]
  - Asthenia [None]
  - Syncope [None]
  - Abdominal distension [None]
  - General physical health deterioration [None]
  - Neck pain [None]
  - Arthropathy [None]
  - Glossodynia [None]
  - Spinal pain [None]
  - Pain in extremity [None]
  - Sleep disorder due to general medical condition, insomnia type [None]
  - Decreased activity [None]
  - Atrioventricular block second degree [None]
  - Nausea [None]
  - Abdominal pain upper [None]
